FAERS Safety Report 4422341-4 (Version None)
Quarter: 2004Q3

REPORT INFORMATION
  Report Type: 
  Country: None (occurrence: None)
  Receive Date: 20040810
  Receipt Date: 20040803
  Transmission Date: 20050211
  Serious: Yes (Hospitalization)
  Sender: FDA-Public Use
  Company Number: 200417770GDDC

PATIENT
  Age: 80 Year
  Sex: Female

DRUGS (6)
  1. CO-AMILOFRUSE [Suspect]
     Indication: CARDIAC FAILURE CONGESTIVE
     Route: 048
     Dates: start: 20040624, end: 20040625
  2. GLICLAZIDE [Suspect]
     Indication: DIABETES MELLITUS
     Route: 048
     Dates: start: 20040612, end: 20040625
  3. ASPIRIN [Concomitant]
     Indication: CARDIAC DISORDER
     Route: 048
     Dates: start: 20040624
  4. ASPIRIN [Concomitant]
     Indication: PROPHYLAXIS
     Route: 048
     Dates: start: 20040624
  5. METFORMIN HCL [Concomitant]
     Indication: DIABETES MELLITUS
     Route: 048
     Dates: start: 20040624
  6. FRUSEMIDE [Concomitant]
     Indication: CARDIAC FAILURE CONGESTIVE
     Route: 048
     Dates: end: 20040624

REACTIONS (2)
  - INFECTION [None]
  - PHOTOSENSITIVE RASH [None]
